FAERS Safety Report 24328846 (Version 1)
Quarter: 2024Q3

REPORT INFORMATION
  Report Type: Spontaneous
  Country: US (occurrence: US)
  Receive Date: 20240917
  Receipt Date: 20240917
  Transmission Date: 20241016
  Serious: Yes (Hospitalization)
  Sender: BRISTOL MYERS SQUIBB
  Company Number: US-BRISTOL-MYERS SQUIBB COMPANY-2024-144682

PATIENT
  Age: 78 Year
  Sex: Female

DRUGS (1)
  1. LENALIDOMIDE [Suspect]
     Active Substance: LENALIDOMIDE
     Indication: Plasma cell myeloma
     Dosage: TAKE 1 CAPSULE BY MOUTH WHOLE WITH WATER AT SAME TIME DAILY ON DAYS 1-21 OF EACH 28 DAY CYCLE
     Route: 048

REACTIONS (9)
  - Diarrhoea [Unknown]
  - Constipation [Unknown]
  - Nausea [Unknown]
  - Fatigue [Unknown]
  - Pain [Unknown]
  - Depression [Unknown]
  - Initial insomnia [Unknown]
  - Gout [Not Recovered/Not Resolved]
  - Product dose omission in error [Unknown]
